FAERS Safety Report 8551848-3 (Version None)
Quarter: 2012Q3

REPORT INFORMATION
  Report Type: 
  Country: None (occurrence: None)
  Receive Date: 20120730
  Receipt Date: 20120720
  Transmission Date: 20120928
  Serious: Yes (Other)
  Sender: FDA-Public Use
  Company Number: US-ASTRAZENECA-2012SE45701

PATIENT
  Age: 64 Year
  Sex: Male
  Weight: 122 kg

DRUGS (26)
  1. PHOSLO [Concomitant]
     Route: 048
     Dates: start: 20120606
  2. ASPIRIN [Concomitant]
     Indication: CHEST PAIN
     Route: 048
  3. NITROGLYCERIN [Concomitant]
  4. LOTREL [Concomitant]
     Dosage: 5/40 ONE DAILY TO HOLD WHEN ON DIALYSIS
     Route: 048
     Dates: start: 20100706
  5. DEXTROSE [Concomitant]
     Route: 042
  6. GLYBURIDE [Concomitant]
     Route: 048
     Dates: start: 20101207
  7. NEXIUM [Suspect]
     Route: 048
     Dates: start: 20080902
  8. NOVOLIN 70/30 [Concomitant]
     Dates: start: 20080904
  9. PNEUMOCOCCAL VACCINE [Concomitant]
     Route: 030
  10. PROCARDIA [Concomitant]
     Route: 048
  11. SENSIPAR [Concomitant]
     Route: 048
     Dates: start: 20090206
  12. NORMAL SALINE SOLUTION [Concomitant]
     Route: 042
  13. ZOFRON [Concomitant]
     Indication: VOMITING
     Route: 042
  14. LIPITOR [Concomitant]
     Route: 048
     Dates: start: 20080902
  15. NEPHROCAPS [Concomitant]
     Route: 048
     Dates: start: 20080902
  16. ENGERIX-B [Concomitant]
     Route: 030
  17. DIPHENHYDRAMINE HCL [Concomitant]
     Route: 042
  18. PROMETHAZINE [Concomitant]
     Indication: NAUSEA
     Route: 042
  19. ACTOS [Concomitant]
     Route: 048
     Dates: start: 20101207
  20. ADVAIR DISKUS 100/50 [Concomitant]
     Dosage: ONE PUFF EVERY 12 HOURS
     Dates: start: 20111105
  21. SPIRIVA [Concomitant]
     Dosage: ONE PUFF EVERY DAY
     Dates: start: 20111105
  22. CLONIDINE [Concomitant]
     Route: 048
  23. FLUVIRIN [Concomitant]
     Route: 030
  24. OXYGEN [Concomitant]
  25. ACETAMINOPHEN [Concomitant]
     Dosage: TWO TABLETS EVERY FOUR HOURS PRN
     Route: 048
  26. ZOFRON [Concomitant]
     Indication: NAUSEA
     Route: 042

REACTIONS (4)
  - DIABETIC NEPHROPATHY [None]
  - HYPOXIA [None]
  - RENAL FAILURE CHRONIC [None]
  - RENAL DISORDER [None]
